FAERS Safety Report 7529750-5 (Version None)
Quarter: 2011Q2

REPORT INFORMATION
  Report Type: 
  Country: None (occurrence: None)
  Receive Date: 20110531
  Receipt Date: 20110517
  Transmission Date: 20111010
  Serious: Yes (Other)
  Sender: FDA-Public Use
  Company Number: 2011AP000241

PATIENT
  Sex: Female

DRUGS (1)
  1. KETOTIPEN FUMARATE OPHTHALMIC SOLUTION [Suspect]
     Indication: PRODUCT USED FOR UNKNOWN INDICATION
     Dosage: 1 GTT; TIW; OPH
     Route: 047

REACTIONS (3)
  - EYE DISORDER [None]
  - EYE HAEMORRHAGE [None]
  - PRODUCT QUALITY ISSUE [None]
